FAERS Safety Report 6836400-X (Version None)
Quarter: 2010Q3

REPORT INFORMATION
  Report Type: 
  Country: None (occurrence: None)
  Receive Date: 20100712
  Receipt Date: 20100712
  Transmission Date: 20110219
  Serious: No
  Sender: FDA-Public Use
  Company Number: None

PATIENT
  Age: 54 Year
  Sex: Male
  Weight: 97.0698 kg

DRUGS (1)
  1. LUNESTA [Suspect]
     Indication: INSOMNIA
     Dosage: 1 AT HS PRN PO
     Route: 048
     Dates: start: 20100603, end: 20100709

REACTIONS (3)
  - CONTUSION [None]
  - FALL [None]
  - SOMNAMBULISM [None]
